FAERS Safety Report 4665751-2 (Version None)
Quarter: 2005Q2

REPORT INFORMATION
  Report Type: 
  Country: None (occurrence: None)
  Receive Date: 20050517
  Receipt Date: 20050504
  Transmission Date: 20051028
  Serious: Yes (Other)
  Sender: FDA-Public Use
  Company Number: 214326

PATIENT
  Sex: Female

DRUGS (1)
  1. RITUXAN [Suspect]
     Indication: ACCIDENTAL EXPOSURE
     Dates: start: 20050504, end: 20050504

REACTIONS (1)
  - ACCIDENTAL EXPOSURE [None]
